FAERS Safety Report 9518646 (Version 1)
Quarter: 2013Q3

REPORT INFORMATION
  Report Type: Spontaneous
  Country: FR (occurrence: FR)
  Receive Date: 20130912
  Receipt Date: 20130912
  Transmission Date: 20140515
  Serious: Yes (Hospitalization)
  Sender: FDA-Public Use
  Company Number: PHHY2013FR100442

PATIENT
  Age: 75 Year
  Sex: Female

DRUGS (6)
  1. ACLASTA [Suspect]
     Dosage: 5 MG,
     Route: 042
     Dates: start: 20110706
  2. TRANXENE [Concomitant]
     Dosage: UNK UKN, UNK
  3. COTAREG [Concomitant]
     Dosage: UNK UKN, UNK
  4. SPASFON [Concomitant]
     Dosage: UNK UKN, UNK
  5. MOPRAL [Concomitant]
     Dosage: UNK UKN, UNK
  6. RYTHMOL//PROPAFENONE [Concomitant]
     Dosage: UNK UKN, UNK

REACTIONS (6)
  - Fall [Recovered/Resolved]
  - Malaise [Recovered/Resolved]
  - Dizziness [Recovered/Resolved]
  - Vomiting [Recovered/Resolved]
  - Headache [Recovered/Resolved]
  - Pyrexia [Recovered/Resolved]
